FAERS Safety Report 5334958-3 (Version None)
Quarter: 2007Q2

REPORT INFORMATION
  Report Type: 
  Country: None (occurrence: None)
  Receive Date: 20070522
  Receipt Date: 20070509
  Transmission Date: 20071010
  Serious: Yes (Hospitalization)
  Sender: FDA-Public Use
  Company Number: MEDI-0004553

PATIENT
  Sex: 0
  Weight: 3.47 kg

DRUGS (3)
  1. SYNAGIS [Suspect]
     Indication: ANTIVIRAL PROPHYLAXIS
     Dosage: SEE IMAGE
     Route: 030
     Dates: start: 20051130, end: 20051130
  2. SYNAGIS [Suspect]
     Indication: ANTIVIRAL PROPHYLAXIS
     Dosage: SEE IMAGE
     Route: 030
     Dates: start: 20060320, end: 20060320
  3. SYNAGIS [Suspect]
     Indication: ANTIVIRAL PROPHYLAXIS
     Dosage: SEE IMAGE
     Route: 030
     Dates: start: 20051214

REACTIONS (5)
  - BRONCHIOLITIS [None]
  - BRONCHOPULMONARY DYSPLASIA [None]
  - FEEDING DISORDER [None]
  - GASTROOESOPHAGEAL REFLUX DISEASE [None]
  - INFANTILE ASTHMA [None]
